FAERS Safety Report 6763441-3 (Version None)
Quarter: 2010Q2

REPORT INFORMATION
  Report Type: 
  Country: None (occurrence: None)
  Receive Date: 20100610
  Receipt Date: 20100607
  Transmission Date: 20101027
  Serious: Yes (Hospitalization)
  Sender: FDA-Public Use
  Company Number: BR-ROXANE LABORATORIES, INC.-2010-RO-00689RO

PATIENT
  Age: 23 Year
  Sex: Female

DRUGS (2)
  1. RAMIPRIL [Suspect]
     Indication: DIABETIC NEPHROPATHY
  2. HUMAN INSULIN [Suspect]
     Indication: TYPE 1 DIABETES MELLITUS

REACTIONS (3)
  - ANGIOEDEMA [None]
  - HYPERSENSITIVITY [None]
  - PRURIGO [None]
